FAERS Safety Report 7829573-3 (Version None)
Quarter: 2011Q4

REPORT INFORMATION
  Report Type: 
  Country: None (occurrence: None)
  Receive Date: 20111020
  Receipt Date: 20111017
  Transmission Date: 20120403
  Serious: Yes (Other)
  Sender: FDA-Public Use
  Company Number: CZ-ABBOTT-11P-217-0865290-00

PATIENT
  Sex: Female
  Weight: 65 kg

DRUGS (1)
  1. HUMIRA [Suspect]
     Indication: PSORIATIC ARTHROPATHY
     Route: 058
     Dates: start: 20080822

REACTIONS (10)
  - PSYCHOTIC DISORDER [None]
  - INFLAMMATION [None]
  - ANOSMIA [None]
  - AUTOIMMUNE DISORDER [None]
  - PSORIASIS [None]
  - NERVOUSNESS [None]
  - DEPRESSION [None]
  - ANXIETY [None]
  - AGEUSIA [None]
  - INFECTION [None]
